FAERS Safety Report 17910980 (Version 1)
Quarter: 2020Q2

REPORT INFORMATION
  Report Type: Spontaneous
  Country: US (occurrence: US)
  Receive Date: 20200618
  Receipt Date: 20200618
  Transmission Date: 20200714
  Serious: Yes (Hospitalization, Disabling, Other)
  Sender: FDA-Public Use
  Company Number: US-009507513-2006USA003722

PATIENT
  Age: 71 Year
  Sex: Female
  Weight: 54.4 kg

DRUGS (23)
  1. RYTARY [Suspect]
     Active Substance: CARBIDOPA\LEVODOPA
     Dosage: UNK
  2. LEFLUNOMIDE. [Concomitant]
     Active Substance: LEFLUNOMIDE
     Dosage: UNK
  3. ESCITALOPRAM [Concomitant]
     Active Substance: ESCITALOPRAM OXALATE
     Dosage: UNK
  4. MIRALAX [Concomitant]
     Active Substance: POLYETHYLENE GLYCOL 3350
     Dosage: UNK
  5. SINEMET [Suspect]
     Active Substance: CARBIDOPA\LEVODOPA
     Dosage: HALF A TABLET, AS NEEDED
     Route: 048
     Dates: start: 2020
  6. SINEMET [Suspect]
     Active Substance: CARBIDOPA\LEVODOPA
     Dosage: 4 DOSES (ALSO REPORTED AS DOSAGE UNITS) PER DAY
     Route: 048
     Dates: start: 202003
  7. CLONAZEPAM. [Suspect]
     Active Substance: CLONAZEPAM
     Dosage: UNK, 0.5 (HALF) TABLET
     Dates: start: 2020, end: 2020
  8. FLUDROCORTISONE [Concomitant]
     Active Substance: FLUDROCORTISONE
     Dosage: UNK
  9. AMANTADINE. [Suspect]
     Active Substance: AMANTADINE HYDROCHLORIDE
     Dosage: 274 MILLIGRAM, 1X/DAY AT BEDTIME
     Route: 048
     Dates: start: 20190704, end: 202003
  10. DONEPEZIL. [Concomitant]
     Active Substance: DONEPEZIL
     Dosage: UNK
  11. ENSURE [Concomitant]
     Active Substance: AMINO ACIDS\DEXTROSE\ELECTROLYTES NOS\SOYBEAN OIL\VITAMINS
     Dosage: UNK
  12. AMANTADINE. [Suspect]
     Active Substance: AMANTADINE HYDROCHLORIDE
     Indication: DYSKINESIA
     Dosage: 137 MILLIGRAM, 1X/DAY AT BEDTIME X 7 DAYS
     Route: 048
     Dates: start: 20190627, end: 20190703
  13. AMANTADINE. [Suspect]
     Active Substance: AMANTADINE HYDROCHLORIDE
     Dosage: 137 MILLIGRAM, 1X/DAY AT BEDTIME
     Route: 048
     Dates: start: 202003, end: 202003
  14. CLONAZEPAM. [Suspect]
     Active Substance: CLONAZEPAM
     Dosage: UNK
  15. REMERON [Concomitant]
     Active Substance: MIRTAZAPINE
     Dosage: UNK
  16. VITAMINS (UNSPECIFIED) [Concomitant]
     Active Substance: VITAMINS
     Dosage: UNK
  17. PHENAZOPYRIDINE HYDROCHLORIDE. [Concomitant]
     Active Substance: PHENAZOPYRIDINE HYDROCHLORIDE
  18. SINEMET [Suspect]
     Active Substance: CARBIDOPA\LEVODOPA
     Dosage: 7 DOSES (ALSO REPORTED AS DOSAGE UNITS) PER DAY
     Route: 048
     Dates: end: 2020
  19. CLONAZEPAM. [Suspect]
     Active Substance: CLONAZEPAM
     Dosage: UNK, 0.25 (QUARTER) TABLET
     Dates: start: 2020
  20. OMEPRAZOLE. [Concomitant]
     Active Substance: OMEPRAZOLE
     Dosage: UNK
  21. ONDANSETRON [Concomitant]
     Active Substance: ONDANSETRON
     Dosage: UNK
  22. TRAMADOL HYDROCHLORIDE. [Concomitant]
     Active Substance: TRAMADOL HYDROCHLORIDE
     Dosage: UNK
  23. METAMUCIL [Concomitant]
     Active Substance: PLANTAGO SEED
     Dosage: UNK

REACTIONS (12)
  - Dysuria [Unknown]
  - Memory impairment [Unknown]
  - Cerebral haematoma [Recovered/Resolved]
  - Dementia [Unknown]
  - Urge incontinence [Not Recovered/Not Resolved]
  - Fall [Not Recovered/Not Resolved]
  - Eating disorder [Unknown]
  - Parkinson^s disease [Not Recovered/Not Resolved]
  - Blood potassium decreased [Recovering/Resolving]
  - Insomnia [Not Recovered/Not Resolved]
  - Medical device battery replacement [Recovered/Resolved]
  - Face injury [Unknown]

NARRATIVE: CASE EVENT DATE: 2020
